FAERS Safety Report 11925158 (Version 1)
Quarter: 2016Q1

REPORT INFORMATION
  Report Type: Spontaneous
  Country: US (occurrence: US)
  Receive Date: 20160118
  Receipt Date: 20160118
  Transmission Date: 20160526
  Serious: Yes (Hospitalization)
  Sender: FDA-Public Use
  Company Number: US-SHIRE-US201600469

PATIENT
  Age: 12 Year
  Sex: Female

DRUGS (1)
  1. ELAPRASE [Suspect]
     Active Substance: IDURSULFASE
     Indication: MUCOPOLYSACCHARIDOSIS II
     Dosage: 18 MG, OTHER (EVERY 1-2 WEEKS)
     Route: 041
     Dates: start: 20140702

REACTIONS (4)
  - Eye swelling [Unknown]
  - Inappropriate schedule of drug administration [Not Recovered/Not Resolved]
  - Viral infection [Unknown]
  - Hypophagia [Unknown]

NARRATIVE: CASE EVENT DATE: 20140702
